FAERS Safety Report 4723327-2 (Version None)
Quarter: 2005Q3

REPORT INFORMATION
  Report Type: 
  Country: None (occurrence: None)
  Receive Date: 20050725
  Receipt Date: 20050714
  Transmission Date: 20060218
  Serious: Yes (Hospitalization)
  Sender: FDA-Public Use
  Company Number: JP-SOLVAY-00305002276

PATIENT
  Age: 19 Year
  Sex: Female

DRUGS (1)
  1. LUVOX [Suspect]
     Indication: ILL-DEFINED DISORDER
     Dosage: DAILY DOSE: 25 MILLIGRAM(S)
     Route: 048
     Dates: end: 20050619

REACTIONS (1)
  - NEUROLEPTIC MALIGNANT SYNDROME [None]
